FAERS Safety Report 9528924 (Version 1)
Quarter: 2013Q2

REPORT INFORMATION
  Report Type: Spontaneous
  Country: US (occurrence: None)
  Receive Date: 20130401
  Receipt Date: 20130401
  Transmission Date: 20140414
  Serious: Yes (Other)
  Sender: FDA-Public Use
  Company Number: PHEH2012US024068

PATIENT
  Age: 76 Year
  Sex: Female

DRUGS (3)
  1. EXELON PATCH (RIVASTIGMINE) TRANS-THERAPEUTIC-SYSTEM [Suspect]
  2. LEXAPRO (ESCITALOPRAM OXALATE) [Concomitant]
  3. FOSAMAX (ALENDRONATE SODIUM) [Concomitant]

REACTIONS (2)
  - Weight decreased [None]
  - Bone density abnormal [None]
